FAERS Safety Report 17978815 (Version 5)
Quarter: 2020Q4

REPORT INFORMATION
  Report Type: Spontaneous
  Country: US (occurrence: US)
  Receive Date: 20200703
  Receipt Date: 20201026
  Transmission Date: 20210113
  Serious: Yes (Hospitalization, Other)
  Sender: FDA-Public Use
  Company Number: US-PFIZER INC-2020254809

PATIENT
  Age: 63 Year
  Sex: Female
  Weight: 91.63 kg

DRUGS (2)
  1. LORBRENA [Suspect]
     Active Substance: LORLATINIB
     Indication: NON-SMALL CELL LUNG CANCER STAGE IV
     Dosage: 75 MG, 1X/DAY (25MG; THREE TABLETS NIGHTLY)
     Dates: start: 201907
  2. LORBRENA [Suspect]
     Active Substance: LORLATINIB
     Dosage: 25 MG, UNK

REACTIONS (12)
  - Hallucination [Unknown]
  - Pneumonia [Unknown]
  - Cardiac failure congestive [Unknown]
  - Cardiomyopathy [Unknown]
  - Anxiety [Unknown]
  - Pain [Not Recovered/Not Resolved]
  - Abnormal dreams [Unknown]
  - Blood cholesterol increased [Unknown]
  - Tachycardia [Unknown]
  - Sleep disorder [Unknown]
  - Feeling abnormal [Unknown]
  - Speech disorder [Unknown]

NARRATIVE: CASE EVENT DATE: 201909
